FAERS Safety Report 14485058 (Version 8)
Quarter: 2019Q3

REPORT INFORMATION
  Report Type: Spontaneous
  Country: US (occurrence: US)
  Receive Date: 20180205
  Receipt Date: 20190918
  Transmission Date: 20191004
  Serious: Yes (Other)
  Sender: FDA-Public Use
  Company Number: US-PFIZER INC-2018043575

PATIENT
  Age: 47 Year
  Sex: Female

DRUGS (3)
  1. IBRANCE [Suspect]
     Active Substance: PALBOCICLIB
     Dosage: 125 MG, CYCLIC (DAILY FOR 21 DAYS ON AND 7 DAYS OFF)
     Route: 048
     Dates: start: 20190712, end: 2019
  2. FEMARA [Suspect]
     Active Substance: LETROZOLE
     Dosage: UNK UNK, DAILY
     Route: 048
  3. IBRANCE [Suspect]
     Active Substance: PALBOCICLIB
     Indication: BREAST CANCER FEMALE
     Dosage: 125 MG, CYCLIC (FOR 21 DAYS ON AND 7 DAYS OFF)
     Route: 048
     Dates: start: 201610, end: 201904

REACTIONS (15)
  - Fatigue [Unknown]
  - Haemoglobin decreased [Unknown]
  - Bone marrow failure [Unknown]
  - Product dose omission [Unknown]
  - Palmar-plantar erythrodysaesthesia syndrome [Unknown]
  - Arthralgia [Unknown]
  - Skin discolouration [Unknown]
  - Peripheral swelling [Not Recovered/Not Resolved]
  - Trigger finger [Unknown]
  - Malaise [Unknown]
  - Oropharyngeal pain [Unknown]
  - Weight increased [Unknown]
  - Inflammation [Not Recovered/Not Resolved]
  - Alopecia [Unknown]
  - Skin lesion [Unknown]
